FAERS Safety Report 24367178 (Version 1)
Quarter: 2024Q3

REPORT INFORMATION
  Report Type: Spontaneous
  Country: US (occurrence: None)
  Receive Date: 20240926
  Receipt Date: 20240926
  Transmission Date: 20241017
  Serious: Yes (Hospitalization)
  Sender: Public
  Company Number: None

PATIENT
  Sex: Female

DRUGS (2)
  1. TACROLIMUS [Suspect]
     Active Substance: TACROLIMUS
     Indication: Renal transplant
     Dosage: OTHER FREQUENCY : DAILY 1.5MG AM AND 1MG PM ;?
     Route: 048
  2. TACROLIMUS [Suspect]
     Active Substance: TACROLIMUS
     Indication: Contraception
     Dosage: OTHER FREQUENCY : DAILY 1.5MG AM AND 1MG PM;?
     Route: 048

REACTIONS (2)
  - Kidney infection [None]
  - Sepsis [None]
